FAERS Safety Report 12604360 (Version 1)
Quarter: 2016Q3

REPORT INFORMATION
  Report Type: Report from Study
  Country: BR (occurrence: BR)
  Receive Date: 20160728
  Receipt Date: 20160728
  Transmission Date: 20161109
  Serious: Yes (Other)
  Sender: FDA-Public Use
  Company Number: PHHY2016BR102480

PATIENT
  Sex: Female
  Weight: 51 kg

DRUGS (1)
  1. EXJADE [Suspect]
     Active Substance: DEFERASIROX
     Indication: SICKLE CELL ANAEMIA
     Dosage: 1000 MG (500 MG, 2 DF), UNK
     Route: 065
     Dates: start: 20150917

REACTIONS (4)
  - Malaise [Unknown]
  - Abasia [Unknown]
  - Sickle cell anaemia [Unknown]
  - Pain [Unknown]
